FAERS Safety Report 13923773 (Version 8)
Quarter: 2020Q1

REPORT INFORMATION
  Report Type: Spontaneous
  Country: US (occurrence: US)
  Receive Date: 20170831
  Receipt Date: 20200318
  Transmission Date: 20200409
  Serious: No
  Sender: FDA-Public Use
  Company Number: US-PFIZER INC-2017373086

PATIENT
  Age: 69 Year
  Sex: Female
  Weight: 82 kg

DRUGS (4)
  1. LYRICA [Suspect]
     Active Substance: PREGABALIN
     Dosage: 150 MG, 1X/DAY (AT NIGHT)
     Route: 048
     Dates: start: 201709, end: 201903
  2. LYRICA [Suspect]
     Active Substance: PREGABALIN
     Indication: FIBROMYALGIA
     Dosage: 150 MG, 1X/DAY (AT BEDTIME)
     Route: 048
     Dates: start: 20170822
  3. LYRICA [Suspect]
     Active Substance: PREGABALIN
     Dosage: 150 MG, 1X/DAY
     Route: 048
  4. LYRICA [Suspect]
     Active Substance: PREGABALIN
     Dosage: 1 DF, DAILY (1 CAPSULE A DAY)

REACTIONS (8)
  - Withdrawal syndrome [Unknown]
  - Insomnia [Not Recovered/Not Resolved]
  - Feeling abnormal [Recovering/Resolving]
  - Pain [Not Recovered/Not Resolved]
  - Abnormal dreams [Unknown]
  - Headache [Unknown]
  - Intentional product misuse [Unknown]
  - Dizziness [Not Recovered/Not Resolved]

NARRATIVE: CASE EVENT DATE: 20170823
